FAERS Safety Report 11667469 (Version 1)
Quarter: 2015Q4

REPORT INFORMATION
  Report Type: Spontaneous
  Country: US (occurrence: US)
  Receive Date: 20151027
  Receipt Date: 20151027
  Transmission Date: 20160304
  Serious: No
  Sender: FDA-Public Use
  Company Number: US-ELI_LILLY_AND_COMPANY-US201001003964

PATIENT
  Sex: Female

DRUGS (3)
  1. CALCIUM [Concomitant]
     Active Substance: CALCIUM
     Dosage: UNK, UNKNOWN
  2. FORTEO [Suspect]
     Active Substance: TERIPARATIDE
     Indication: OSTEOPOROSIS
     Dosage: 20 UG, DAILY (1/D)
     Dates: start: 20091118
  3. CALCIUM [Concomitant]
     Active Substance: CALCIUM
     Dosage: 1200 MG, 2/D

REACTIONS (8)
  - Blood calcium decreased [Not Recovered/Not Resolved]
  - Spinal pain [Unknown]
  - Gait disturbance [Recovered/Resolved]
  - Arthralgia [Unknown]
  - Neck pain [Unknown]
  - Protein total decreased [Not Recovered/Not Resolved]
  - Muscle spasms [Unknown]
  - Pain in extremity [Unknown]
